FAERS Safety Report 21299382 (Version 2)
Quarter: 2022Q4

REPORT INFORMATION
  Report Type: Spontaneous
  Country: US (occurrence: None)
  Receive Date: 20220906
  Receipt Date: 20221006
  Transmission Date: 20230112
  Serious: No
  Sender: FDA-Public Use
  Company Number: US-ETHYPHARM-2022001696

PATIENT
  Age: 61 Year
  Sex: Female

DRUGS (1)
  1. BUPRENORPHINE [Suspect]
     Active Substance: BUPRENORPHINE
     Indication: Pain
     Route: 048

REACTIONS (2)
  - Product quality issue [Unknown]
  - Product use complaint [Unknown]
